FAERS Safety Report 11699431 (Version 1)
Quarter: 2015Q4

REPORT INFORMATION
  Report Type: Report from Study
  Country: BR (occurrence: BR)
  Receive Date: 20151104
  Receipt Date: 20151104
  Transmission Date: 20160304
  Serious: Yes (Death, Other)
  Sender: FDA-Public Use
  Company Number: PHHY2015BR143705

PATIENT
  Sex: Male
  Weight: 72 kg

DRUGS (1)
  1. EXELON PATCH [Suspect]
     Active Substance: RIVASTIGMINE
     Indication: ARTERIOSCLEROSIS
     Dosage: PATCH 10 (CM2)
     Route: 062

REACTIONS (4)
  - General physical health deterioration [Unknown]
  - Product use issue [Unknown]
  - Bronchitis chronic [Unknown]
  - Myocardial infarction [Fatal]
